FAERS Safety Report 11875326 (Version 1)
Quarter: 2015Q4

REPORT INFORMATION
  Report Type: Spontaneous
  Country: US (occurrence: US)
  Receive Date: 20151229
  Receipt Date: 20151229
  Transmission Date: 20160305
  Serious: Yes (Other)
  Sender: FDA-Public Use
  Company Number: US-CIPLA LTD.-2015US09606

PATIENT

DRUGS (5)
  1. PIPAMPERONE [Suspect]
     Active Substance: PIPAMPERONE
     Dosage: MOTHER TOOK 50 MG/DAY FOR 14 DAYS DURING FIRST TRIMESTER
     Route: 064
  2. ETHYL LOFLAZEPATE [Suspect]
     Active Substance: ETHYL LOFLAZEPATE
     Dosage: MOTHER TOOK 2 MG/DAY FOR 49 DAYS DURING FIRST TRIMESTER
     Route: 064
  3. BROMAZEPAM [Suspect]
     Active Substance: BROMAZEPAM
     Dosage: MOTHER TOOK 4-6 MG/DAY DURING THE SECOND AND THIRD TRIMESTERS
     Route: 064
  4. RISPERIDONE. [Suspect]
     Active Substance: RISPERIDONE
     Indication: DELUSION
     Route: 064
  5. BROTIZOLAM [Suspect]
     Active Substance: BROTIZOLAM
     Dosage: MOTHER TOOK 0.25 MG/DAY INTERMITTENTLY
     Route: 064

REACTIONS (4)
  - Moyamoya disease [Unknown]
  - Hemiplegia [Recovered/Resolved]
  - Foetal exposure during pregnancy [Unknown]
  - Cerebral infarction [Unknown]
